FAERS Safety Report 4837442-6 (Version None)
Quarter: 2005Q4

REPORT INFORMATION
  Report Type: 
  Country: None (occurrence: None)
  Receive Date: 20051128
  Receipt Date: 20051114
  Transmission Date: 20060501
  Serious: Yes (Disabling, Other)
  Sender: FDA-Public Use
  Company Number: JP-JNJFOC-20050901535

PATIENT
  Age: 48 Year
  Sex: Female

DRUGS (2)
  1. URO-TARAVID [Suspect]
     Dosage: TAKEN ^NOW + THEN FOR YEARS^ (ABOUT 3 TO 4 TIMES A YEAR).
     Route: 048
     Dates: end: 20050301
  2. EUTHYROX [Concomitant]
     Indication: PROPHYLAXIS
     Dosage: DURATION - A FEW YEARS
     Route: 048

REACTIONS (8)
  - ARTHROPOD BITE [None]
  - CORNEAL REFLEX DECREASED [None]
  - FACIAL PARESIS [None]
  - HEADACHE [None]
  - LAGOPHTHALMOS [None]
  - NASOPHARYNGITIS [None]
  - TENDERNESS [None]
  - VARICELLA ZOSTER VIRUS SEROLOGY POSITIVE [None]
